FAERS Safety Report 5225893-X (Version None)
Quarter: 2007Q1

REPORT INFORMATION
  Report Type: 
  Country: None (occurrence: None)
  Receive Date: 20070201
  Receipt Date: 20070125
  Transmission Date: 20070707
  Serious: Yes (Other)
  Sender: FDA-Public Use
  Company Number: 2007UW01596

PATIENT
  Sex: Female

DRUGS (9)
  1. CRESTOR [Suspect]
     Route: 048
     Dates: start: 20070119
  2. LASIX [Concomitant]
  3. DIGOXIN [Concomitant]
  4. PRINIVIL [Concomitant]
  5. COREG [Concomitant]
  6. POTASSIUM ACETATE [Concomitant]
  7. AZMACORT [Concomitant]
  8. FLONASE [Concomitant]
  9. ATROVENT [Concomitant]

REACTIONS (3)
  - GINGIVAL DISORDER [None]
  - PRURITUS [None]
  - SWOLLEN TONGUE [None]
